FAERS Safety Report 8244959 (Version 6)
Quarter: 2012Q4

REPORT INFORMATION
  Report Type: 
  Country: JP (occurrence: JP)
  Receive Date: 20111115
  Receipt Date: 20120918
  Transmission Date: 20130627
  Serious: Yes (Hospitalization, Other)
  Sender: FDA-Public Use
  Company Number: PHHY2011JP099304

PATIENT
  Age: 71 None
  Sex: Male
  Weight: 78 kg

DRUGS (11)
  1. GLIVEC [Suspect]
     Indication: CHRONIC MYELOID LEUKAEMIA
     Dosage: 400 mg daily
     Route: 048
     Dates: start: 20050603, end: 20110415
  2. GLIVEC [Suspect]
     Dosage: 200 mg daily
     Route: 048
     Dates: start: 20110621, end: 20111018
  3. BLOPRESS [Concomitant]
     Indication: HYPERTENSION
     Dosage: 8 mg, UNK
     Route: 048
     Dates: start: 20011111
  4. AMLODIPINE BESYLATE [Concomitant]
     Indication: HYPERTENSION
     Dosage: 5 mg, UNK
     Route: 048
     Dates: start: 20011111
  5. LASIX [Concomitant]
     Indication: HYPERTENSION
     Dosage: 20 mg, UNK
     Route: 048
     Dates: start: 20110304, end: 20110408
  6. LASIX [Concomitant]
     Dosage: 80 mg, UNK
     Route: 048
  7. BAYASPIRIN [Concomitant]
     Indication: ANGINA PECTORIS
     Dosage: 100 mg, UNK
     Route: 048
     Dates: start: 20011111
  8. ITOROL [Concomitant]
     Indication: ANGINA PECTORIS
     Dosage: 40 mg, UNK
     Route: 048
     Dates: start: 20011111
  9. MUCOSTA [Concomitant]
     Indication: GASTRITIS PROPHYLAXIS
     Dosage: 200 mg, UNK
     Route: 048
     Dates: start: 20011111
  10. RED BLOOD CELLS, CONCENTRATED [Concomitant]
     Dosage: 2 U, UNK
  11. RED BLOOD CELLS, CONCENTRATED [Concomitant]
     Dosage: 2 U, UNK

REACTIONS (46)
  - Hypothyroidism [Recovering/Resolving]
  - Hypogammaglobulinaemia [Recovering/Resolving]
  - Decreased appetite [Unknown]
  - Oedema [Unknown]
  - Pleural effusion [Recovering/Resolving]
  - Ascites [Recovered/Resolved]
  - Renal failure acute [Recovered/Resolved with Sequelae]
  - Renal impairment [Recovering/Resolving]
  - Blood creatinine increased [Unknown]
  - Pneumonia [Recovered/Resolved]
  - Renal atrophy [Unknown]
  - Nephrogenic anaemia [Unknown]
  - Bundle branch block right [Unknown]
  - Occult blood positive [Unknown]
  - Renal failure chronic [Unknown]
  - Adenocarcinoma gastric [Recovering/Resolving]
  - Second primary malignancy [Unknown]
  - Bone marrow failure [Unknown]
  - Normochromic normocytic anaemia [Unknown]
  - Blood pressure decreased [Unknown]
  - Cardiac failure [Unknown]
  - Atrial fibrillation [Unknown]
  - Upper gastrointestinal haemorrhage [Unknown]
  - Haematemesis [Unknown]
  - Anaemia [Unknown]
  - Haemoglobin decreased [Unknown]
  - Pericardial effusion [Unknown]
  - Hypoalbuminaemia [Unknown]
  - Large intestine polyp [Unknown]
  - Hiatus hernia [Unknown]
  - Dehydration [Recovering/Resolving]
  - Fluid retention [Unknown]
  - Skin oedema [Recovering/Resolving]
  - Eye oedema [Unknown]
  - Pruritus [Unknown]
  - Abdominal distension [Unknown]
  - Oedema peripheral [Recovering/Resolving]
  - Eyelid oedema [Unknown]
  - Pyrexia [Recovered/Resolved]
  - Pigmentation disorder [Unknown]
  - Gastritis [Unknown]
  - Pneumonia bacterial [None]
  - Prerenal failure [None]
  - Erythema [None]
  - Blood lactate dehydrogenase increased [None]
  - Haemodialysis [None]
